FAERS Safety Report 17116250 (Version 1)
Quarter: 2019Q4

REPORT INFORMATION
  Report Type: Report from Study
  Country: IT (occurrence: IT)
  Receive Date: 20191205
  Receipt Date: 20191205
  Transmission Date: 20200122
  Serious: Yes (Other)
  Sender: FDA-Public Use
  Company Number: IT-MYLANLABS-2019M1118652

PATIENT
  Age: 72 Year
  Sex: Female

DRUGS (8)
  1. ATORVASTATIN [Concomitant]
     Active Substance: ATORVASTATIN
     Dosage: 20 MILLIGRAM
  2. DIAMICRON [Concomitant]
     Active Substance: GLICLAZIDE
     Dosage: UNK
  3. ALLOPURINOL. [Concomitant]
     Active Substance: ALLOPURINOL
     Dosage: 100 MILLIGRAM
  4. METFORMIN [Suspect]
     Active Substance: METFORMIN HYDROCHLORIDE
     Indication: TYPE 2 DIABETES MELLITUS
     Dosage: 3 DOSAGE FORM, QD
     Route: 048
     Dates: start: 20140502, end: 20190609
  5. TIROSINT [Concomitant]
     Active Substance: LEVOTHYROXINE SODIUM
     Dosage: UNK
  6. PRITORPLUS [Concomitant]
     Active Substance: HYDROCHLOROTHIAZIDE\TELMISARTAN
     Dosage: UNK
  7. CITALOPRAM [Concomitant]
     Active Substance: CITALOPRAM HYDROBROMIDE
     Dosage: UNK
  8. LANTUS [Concomitant]
     Active Substance: INSULIN GLARGINE
     Dosage: UNK

REACTIONS (5)
  - Cardiometabolic syndrome [Recovering/Resolving]
  - Acute kidney injury [Recovering/Resolving]
  - Paraesthesia [Recovering/Resolving]
  - Hyperhidrosis [Recovering/Resolving]
  - Malaise [Recovering/Resolving]

NARRATIVE: CASE EVENT DATE: 20190609
